FAERS Safety Report 9724014 (Version 1)
Quarter: 2013Q4

REPORT INFORMATION
  Report Type: Spontaneous
  Country: US (occurrence: US)
  Receive Date: 20131202
  Receipt Date: 20131202
  Transmission Date: 20140711
  Serious: No
  Sender: FDA-Public Use
  Company Number: US-AMGEN-USASP2013079132

PATIENT
  Age: 76 Year
  Sex: Female

DRUGS (2)
  1. ENBREL [Suspect]
     Indication: RHEUMATOID ARTHRITIS
     Dosage: UNK, QWK
     Route: 065
     Dates: start: 2004, end: 20131104
  2. HUMIRA [Concomitant]
     Dosage: UNK

REACTIONS (11)
  - Pruritus generalised [Recovered/Resolved]
  - Chronic obstructive pulmonary disease [Unknown]
  - Arthritis [Not Recovered/Not Resolved]
  - Adverse event [Unknown]
  - Drug ineffective [Unknown]
  - Blood test abnormal [Unknown]
  - Injection site induration [Unknown]
  - Injection site erythema [Unknown]
  - Injection site rash [Unknown]
  - Injection site warmth [Unknown]
  - Injection site swelling [Unknown]
